FAERS Safety Report 8560606-5 (Version None)
Quarter: 2012Q3

REPORT INFORMATION
  Report Type: 
  Country: None (occurrence: None)
  Receive Date: 20120802
  Receipt Date: 20120720
  Transmission Date: 20120928
  Serious: Yes (Hospitalization, Disabling, Other)
  Sender: FDA-Public Use
  Company Number: US-009507513-1205USA02886

PATIENT

DRUGS (1)
  1. FOSAMAX [Suspect]
     Route: 048
     Dates: start: 20070101

REACTIONS (34)
  - CHEST PAIN [None]
  - SPINAL PAIN [None]
  - CHRONIC OBSTRUCTIVE PULMONARY DISEASE [None]
  - KYPHOSCOLIOSIS [None]
  - MYOCARDIAL INFARCTION [None]
  - HYPOKALAEMIA [None]
  - MUSCLE STRAIN [None]
  - FEMUR FRACTURE [None]
  - APPENDICECTOMY [None]
  - SPINAL OSTEOARTHRITIS [None]
  - DWARFISM [None]
  - LOW TURNOVER OSTEOPATHY [None]
  - FALL [None]
  - CHEST DISCOMFORT [None]
  - HYPERTENSION [None]
  - AORTIC ANEURYSM [None]
  - HYPERLIPIDAEMIA [None]
  - TACHYCARDIA [None]
  - LEUKOCYTOSIS [None]
  - OSTEOPOROSIS [None]
  - SURGERY [None]
  - SPINAL COMPRESSION FRACTURE [None]
  - LIMB DEFORMITY [None]
  - KYPHOSIS [None]
  - ABDOMINAL PAIN UPPER [None]
  - STRESS FRACTURE [None]
  - BONE OPERATION [None]
  - CAROTID ARTERY DISEASE [None]
  - NAUSEA [None]
  - CORONARY ARTERY DISEASE [None]
  - OSTEOPENIA [None]
  - OSTEOARTHRITIS [None]
  - ANKLE FRACTURE [None]
  - HEADACHE [None]
